FAERS Safety Report 21260665 (Version 2)
Quarter: 2022Q4

REPORT INFORMATION
  Report Type: Report from Study
  Country: US (occurrence: US)
  Receive Date: 20220826
  Receipt Date: 20221108
  Transmission Date: 20230113
  Serious: Yes (Other)
  Sender: FDA-Public Use
  Company Number: US-JNJFOC-20220837207

PATIENT
  Age: 60 Year
  Sex: Female
  Weight: 80.358 kg

DRUGS (1)
  1. REMICADE [Suspect]
     Active Substance: INFLIXIMAB
     Indication: Colitis ulcerative
     Route: 041
     Dates: end: 20180612

REACTIONS (4)
  - Eye infection toxoplasmal [Unknown]
  - Colitis ulcerative [Unknown]
  - Dehydration [Unknown]
  - Rash [Unknown]
